FAERS Safety Report 13537049 (Version 1)
Quarter: 2017Q2

REPORT INFORMATION
  Report Type: Report from Study
  Country: TR (occurrence: TR)
  Receive Date: 20170511
  Receipt Date: 20170511
  Transmission Date: 20170830
  Serious: Yes (Death, Other)
  Sender: FDA-Public Use
  Company Number: TR-TEVA-766708ROM

PATIENT
  Age: 14 Year
  Sex: Male

DRUGS (3)
  1. CYTARABINE. [Suspect]
     Active Substance: CYTARABINE
     Indication: ACUTE LYMPHOCYTIC LEUKAEMIA RECURRENT
     Dosage: 2 G/M2/DAY OVER 3 HOURS WHICH WAS ADMINISTERED 3.5 HOURS AFTER FLUDARABINE INFUSION
     Route: 050
  2. IDARUBICIN [Suspect]
     Active Substance: IDARUBICIN
     Indication: ACUTE LYMPHOCYTIC LEUKAEMIA RECURRENT
     Dosage: ON DAY 2-4 OF CYCLE AT 12 MG/M2/DAY STARTING ONE HOUR BEFORE THE INITIATION OF CYTARABINE INFUSION
     Route: 050
  3. FLUDARABINE [Suspect]
     Active Substance: FLUDARABINE PHOSPHATE
     Indication: ACUTE LYMPHOCYTIC LEUKAEMIA RECURRENT
     Dosage: 30 MG/M2/DAY OVER 30 MINUTE30 MG/M2/DAY OVER 30 MINUTES ON FOURS ON FOUR CONSECUTIVE DAYS IN A CYCLE
     Route: 041

REACTIONS (3)
  - Bone marrow failure [Unknown]
  - Infection [Fatal]
  - Multiple organ dysfunction syndrome [Fatal]
